FAERS Safety Report 21603293 (Version 2)
Quarter: 2022Q4

REPORT INFORMATION
  Report Type: Report from Study
  Country: US (occurrence: US)
  Receive Date: 20221116
  Receipt Date: 20221208
  Transmission Date: 20230113
  Serious: No
  Sender: FDA-Public Use
  Company Number: US-PFIZER INC-PV202200104276

PATIENT
  Age: 50 Year
  Sex: Female

DRUGS (4)
  1. MEKTOVI [Suspect]
     Active Substance: BINIMETINIB
     Indication: Malignant melanoma
     Dosage: 3 TABLETS TWICE DAILY
     Route: 048
     Dates: start: 20221101
  2. BRAFTOVI [Suspect]
     Active Substance: ENCORAFENIB
     Indication: Malignant melanoma
     Dosage: UNK (75 MG CAP (2 BTL X 90)
  3. LISINOPRIL [Concomitant]
     Active Substance: LISINOPRIL
     Dosage: UNK
  4. LOSARTAN [Concomitant]
     Active Substance: LOSARTAN
     Dosage: UNK

REACTIONS (4)
  - Blood pressure increased [Unknown]
  - Anxiety [Unknown]
  - Constipation [Unknown]
  - Fatigue [Unknown]
